FAERS Safety Report 10712196 (Version 1)
Quarter: 2015Q1

REPORT INFORMATION
  Report Type: Report from Study
  Country: BR (occurrence: BR)
  Receive Date: 20150114
  Receipt Date: 20150114
  Transmission Date: 20150721
  Serious: Yes (Hospitalization)
  Sender: FDA-Public Use
  Company Number: BR-ABBVIE-15K-020-1332140-00

PATIENT
  Sex: Male
  Weight: 90 kg

DRUGS (5)
  1. FLUOXETINE [Concomitant]
     Active Substance: FLUOXETINE\FLUOXETINE HYDROCHLORIDE
     Indication: ANXIETY
     Route: 048
     Dates: start: 2012
  2. HUMIRA [Suspect]
     Active Substance: ADALIMUMAB
     Indication: RHEUMATOID ARTHRITIS
     Route: 058
     Dates: start: 20140101
  3. CAPTOPRIL. [Concomitant]
     Active Substance: CAPTOPRIL
     Indication: BLOOD PRESSURE INCREASED
     Route: 048
     Dates: start: 2012
  4. PHENERGAN [Concomitant]
     Active Substance: PROMETHAZINE HYDROCHLORIDE
     Indication: HYPERSENSITIVITY
     Route: 048
     Dates: start: 2012
  5. DIAZEPAM. [Concomitant]
     Active Substance: DIAZEPAM
     Indication: SLEEP DISORDER THERAPY
     Route: 048
     Dates: start: 2012

REACTIONS (2)
  - Immunodeficiency [Recovering/Resolving]
  - Pneumonia [Recovering/Resolving]
